FAERS Safety Report 25478963 (Version 1)
Quarter: 2025Q2

REPORT INFORMATION
  Report Type: Spontaneous
  Country: US (occurrence: US)
  Receive Date: 20250625
  Receipt Date: 20250625
  Transmission Date: 20250717
  Serious: No
  Sender: PFIZER
  Company Number: US-PFIZER INC-202500128142

PATIENT
  Age: 84 Year
  Sex: Female
  Weight: 68.95 kg

DRUGS (1)
  1. PROPOFOL [Suspect]
     Active Substance: PROPOFOL
     Indication: General anaesthesia
     Route: 042

REACTIONS (1)
  - Vascular pain [Unknown]

NARRATIVE: CASE EVENT DATE: 20250620
